FAERS Safety Report 8044059-1 (Version None)
Quarter: 2012Q1

REPORT INFORMATION
  Report Type: 
  Country: None (occurrence: None)
  Receive Date: 20120111
  Receipt Date: 20120111
  Transmission Date: 20120608
  Serious: Yes (Hospitalization)
  Sender: FDA-Public Use
  Company Number: None

PATIENT
  Sex: Male
  Weight: 66.3 kg

DRUGS (2)
  1. CAMPATH [Suspect]
     Dosage: 60 MG
  2. CYCLOPHOSPHAMIDE [Suspect]

REACTIONS (7)
  - BLOOD PRESSURE FLUCTUATION [None]
  - LOWER RESPIRATORY TRACT INFECTION FUNGAL [None]
  - BRONCHOPULMONARY ASPERGILLOSIS [None]
  - BRADYCARDIA [None]
  - HYPOTENSION [None]
  - NEUTROPHIL COUNT ABNORMAL [None]
  - DEPRESSED LEVEL OF CONSCIOUSNESS [None]
